FAERS Safety Report 15675158 (Version 1)
Quarter: 2018Q4

REPORT INFORMATION
  Report Type: Spontaneous
  Country: US (occurrence: US)
  Receive Date: 20181129
  Receipt Date: 20181129
  Transmission Date: 20190205
  Serious: Yes (Other)
  Sender: FDA-Public Use
  Company Number: None

PATIENT
  Age: 56 Year
  Sex: Male
  Weight: 72 kg

DRUGS (2)
  1. MAXALT [Concomitant]
     Active Substance: RIZATRIPTAN BENZOATE
  2. AIMOVIG [Suspect]
     Active Substance: ERENUMAB-AOOE
     Indication: MIGRAINE
     Dosage: ?          QUANTITY:1 INJECTION(S);OTHER FREQUENCY:MONTHLY;?
     Route: 058
     Dates: start: 20180626, end: 20180926

REACTIONS (10)
  - Constipation [None]
  - Muscle atrophy [None]
  - Weight decreased [None]
  - Muscle spasms [None]
  - Insomnia [None]
  - Fatigue [None]
  - Hyperhidrosis [None]
  - Heart rate increased [None]
  - Pruritus [None]
  - Tinnitus [None]

NARRATIVE: CASE EVENT DATE: 20180901
